FAERS Safety Report 7664201-1 (Version None)
Quarter: 2011Q3

REPORT INFORMATION
  Report Type: 
  Country: None (occurrence: None)
  Receive Date: 20110806
  Receipt Date: 20110114
  Transmission Date: 20111222
  Serious: No
  Sender: FDA-Public Use
  Company Number: US-ABBOTT-11P-163-0697589-00

PATIENT
  Sex: Female
  Weight: 81.72 kg

DRUGS (10)
  1. TRIAMTERENE AND HYDROCHLOROTHIAZIDE [Concomitant]
     Indication: HYPERTENSION
     Dosage: 37.5-25MG DAILY
  2. COMBIVENT [Concomitant]
     Indication: ASTHMA
     Dosage: AS NEEDED
     Route: 055
  3. PLAVIX [Concomitant]
     Indication: ARTERIOSCLEROSIS
  4. NIASPAN [Suspect]
     Indication: ARTERIOSCLEROSIS
     Dates: start: 20110109
  5. SPIRIVA [Concomitant]
     Indication: ASTHMA
     Dosage: 1 INHALATION DAILY AS NEEDED
     Route: 055
  6. GLIMEPIRIDE [Concomitant]
     Indication: DIABETES MELLITUS
  7. CARVEDILOL [Concomitant]
     Indication: HYPERTENSION
     Dosage: 12.5MG IN AM 25MG IN PM
  8. VENTOLIN HFA [Concomitant]
     Indication: ASTHMA
     Dosage: AS NEEDED
     Route: 055
  9. METFORMIN HCL [Concomitant]
     Indication: DIABETES MELLITUS
  10. SYMBICORT [Concomitant]
     Indication: ASTHMA

REACTIONS (3)
  - FLUSHING [None]
  - ERYTHEMA [None]
  - SKIN BURNING SENSATION [None]
